FAERS Safety Report 9820056 (Version 1)
Quarter: 2014Q1

REPORT INFORMATION
  Report Type: Spontaneous
  Country: US (occurrence: None)
  Receive Date: 20140113
  Receipt Date: 20140113
  Transmission Date: 20141002
  Serious: No
  Sender: FDA-Public Use
  Company Number: None

PATIENT
  Age: 58 Year
  Sex: Female
  Weight: 63.5 kg

DRUGS (8)
  1. METOPROLOL ER [Suspect]
     Indication: PALPITATIONS
     Dosage: 1 TABLET
     Route: 048
     Dates: start: 20131223, end: 20140108
  2. METOPROLOL ER [Suspect]
     Indication: SUPRAVENTRICULAR TACHYCARDIA
     Dosage: 1 TABLET
     Route: 048
     Dates: start: 20131223, end: 20140108
  3. MULTIVITAMIN [Concomitant]
  4. LUTEIN [Concomitant]
  5. ZINC [Concomitant]
  6. VITAMIN C [Concomitant]
  7. VITAMIN D [Concomitant]
  8. FISH OIL [Concomitant]

REACTIONS (3)
  - Product substitution issue [None]
  - Palpitations [None]
  - Insomnia [None]
